FAERS Safety Report 5261985-7 (Version None)
Quarter: 2007Q1

REPORT INFORMATION
  Report Type: 
  Country: None (occurrence: None)
  Receive Date: 20070308
  Receipt Date: 20070308
  Transmission Date: 20070707
  Serious: No
  Sender: FDA-Public Use
  Company Number: TPA2007A00114

PATIENT
  Sex: 0

DRUGS (1)
  1. ACTOPLUS MET [Suspect]
     Dosage: 15/500 MG/ TWICE DAILY, PER ORAL
     Route: 048

REACTIONS (3)
  - DRUG DISPENSING ERROR [None]
  - INTERCEPTED MEDICATION ERROR [None]
  - PHARMACEUTICAL PRODUCT COMPLAINT [None]
